FAERS Safety Report 15566181 (Version 2)
Quarter: 2019Q4

REPORT INFORMATION
  Report Type: Spontaneous
  Country: US (occurrence: US)
  Receive Date: 20181030
  Receipt Date: 20191025
  Transmission Date: 20200122
  Serious: No
  Sender: FDA-Public Use
  Company Number: US-NOVOPROD-615735

PATIENT
  Age: 67 Year
  Sex: Female

DRUGS (2)
  1. VAGIFEM LD [Suspect]
     Active Substance: ESTRADIOL
     Indication: VULVOVAGINAL DRYNESS
     Dosage: 10 ?G, BIW
     Route: 067
     Dates: start: 2008
  2. VAGIFEM LD [Suspect]
     Active Substance: ESTRADIOL
     Indication: POSTMENOPAUSE

REACTIONS (1)
  - Genito-pelvic pain/penetration disorder [Recovered/Resolved]

NARRATIVE: CASE EVENT DATE: 20180731
